FAERS Safety Report 16982279 (Version 1)
Quarter: 2019Q4

REPORT INFORMATION
  Report Type: Report from Study
  Country: None (occurrence: AT)
  Receive Date: 20191101
  Receipt Date: 20191101
  Transmission Date: 20200122
  Serious: Yes (Death)
  Sender: FDA-Public Use
  Company Number: AT-ABBVIE-19K-009-2987377-00

PATIENT
  Age: 79 Year
  Sex: Male

DRUGS (1)
  1. DUODOPA [Suspect]
     Active Substance: CARBIDOPA\LEVODOPA
     Indication: PARKINSON^S DISEASE
     Dosage: MD: 10, CRT: 5, ED:3
     Route: 050
     Dates: start: 20170620

REACTIONS (1)
  - Death [Fatal]

NARRATIVE: CASE EVENT DATE: 201907
